FAERS Safety Report 11122027 (Version 1)
Quarter: 2015Q2

REPORT INFORMATION
  Report Type: Spontaneous
  Country: US (occurrence: None)
  Receive Date: 20150518
  Receipt Date: 20150518
  Transmission Date: 20150821
  Serious: No
  Sender: FDA-Public Use
  Company Number: None

PATIENT
  Age: 33 Year
  Sex: Female
  Weight: 62.6 kg

DRUGS (5)
  1. FOLIC ACID. [Concomitant]
     Active Substance: FOLIC ACID
  2. VITAMIN B [Concomitant]
     Active Substance: VITAMIN B
  3. TUNA OIL [Concomitant]
  4. KETO-BACL-GABA-KETA 10-5-5-5% [Suspect]
     Active Substance: BACLOFEN\GABAPENTIN\KETAMINE\KETOPROFEN
     Indication: NEUROPATHY PERIPHERAL
     Dosage: 1-2 PUMPS
     Route: 061
     Dates: start: 20150430, end: 20150430
  5. VITAMIN D [Concomitant]
     Active Substance: CHOLECALCIFEROL

REACTIONS (3)
  - Movement disorder [None]
  - Gait disturbance [None]
  - Pain [None]

NARRATIVE: CASE EVENT DATE: 20150430
